FAERS Safety Report 8045660-1 (Version None)
Quarter: 2012Q1

REPORT INFORMATION
  Report Type: 
  Country: None (occurrence: None)
  Receive Date: 20120112
  Receipt Date: 20120112
  Transmission Date: 20120608
  Serious: Yes (Life-Threatening, Hospitalization)
  Sender: FDA-Public Use
  Company Number: None

PATIENT
  Age: 60 Year
  Sex: Female
  Weight: 89 kg

DRUGS (2)
  1. XARELTO [Suspect]
     Indication: VENTRICULAR TACHYCARDIA
     Dosage: 10 MG DAILY PO
     Route: 048
  2. XARELTO [Suspect]
     Indication: PROPHYLAXIS
     Dosage: 10 MG DAILY PO
     Route: 048

REACTIONS (8)
  - DIZZINESS [None]
  - THERAPEUTIC SKIN CARE TOPICAL [None]
  - PULMONARY EMBOLISM [None]
  - HEADACHE [None]
  - NAUSEA [None]
  - VOMITING [None]
  - PALLOR [None]
  - TREATMENT FAILURE [None]
